FAERS Safety Report 7146063-4 (Version None)
Quarter: 2010Q4

REPORT INFORMATION
  Report Type: 
  Country: None (occurrence: None)
  Receive Date: 20101208
  Receipt Date: 20100928
  Transmission Date: 20110411
  Serious: No
  Sender: FDA-Public Use
  Company Number: US-BAYER-201021884BCC

PATIENT
  Sex: Male
  Weight: 90.909 kg

DRUGS (14)
  1. ALEVE [Suspect]
     Indication: PRODUCT USED FOR UNKNOWN INDICATION
     Dosage: BOTTLE COUNT 100S
     Route: 048
     Dates: start: 20100927
  2. ASPIRIN [Concomitant]
     Route: 065
  3. GABAPENTIN [Concomitant]
     Indication: NEURALGIA
     Route: 065
  4. RIVASTIGMINE [Concomitant]
     Indication: PROSTATIC DISORDER
     Route: 065
  5. CARBIDOPA + LEVODOPA [Concomitant]
     Indication: PARKINSON'S DISEASE
     Route: 065
  6. AMLODIPINE [Concomitant]
     Indication: CARDIAC DISORDER
     Route: 065
  7. ALLOPURINOL [Concomitant]
     Indication: GOUT
     Route: 065
  8. CITALOPRAM HYDROBROMIDE [Concomitant]
     Indication: SLEEP DISORDER
     Route: 065
  9. LISINOPRIL [Concomitant]
     Indication: BLOOD PRESSURE ABNORMAL
     Route: 065
  10. CENTRUM SILVER [Concomitant]
     Route: 065
  11. LOVAZA [Concomitant]
     Route: 065
  12. B COMPLEX [B3,B6,B2,B1 HCL] [Concomitant]
     Route: 065
  13. DIAZEPAM [Concomitant]
     Indication: CARDIAC DISORDER
     Route: 065
  14. TRAZODONE [Concomitant]
     Indication: PROSTATIC DISORDER
     Route: 065

REACTIONS (4)
  - DYSPEPSIA [None]
  - GLOSSODYNIA [None]
  - NAUSEA [None]
  - THROAT IRRITATION [None]
